FAERS Safety Report 4754973-8 (Version None)
Quarter: 2005Q3

REPORT INFORMATION
  Report Type: 
  Country: None (occurrence: None)
  Receive Date: 20050829
  Receipt Date: 20050822
  Transmission Date: 20060218
  Serious: Yes (Hospitalization)
  Sender: FDA-Public Use
  Company Number: PHNU2005DE02966

PATIENT
  Sex: Female

DRUGS (1)
  1. SANDOSTATIN LAR [Suspect]
     Indication: ACROMEGALY
     Dosage: 30 MG, ONCE/SINGLE
     Route: 030
     Dates: start: 20050808, end: 20050808

REACTIONS (4)
  - IATROGENIC INJURY [None]
  - MEDICATION ERROR [None]
  - MONOPLEGIA [None]
  - NERVE INJURY [None]
